FAERS Safety Report 5155676-0 (Version None)
Quarter: 2006Q4

REPORT INFORMATION
  Report Type: 
  Country: None (occurrence: None)
  Receive Date: 20061121
  Receipt Date: 20060913
  Transmission Date: 20070319
  Serious: Yes (Other)
  Sender: FDA-Public Use
  Company Number: FR-MERCK-0609FRA00033

PATIENT
  Age: 58 Year
  Sex: Male

DRUGS (12)
  1. CANCIDAS [Suspect]
     Indication: SYSTEMIC CANDIDA
     Route: 042
     Dates: start: 20060909, end: 20060909
  2. CANCIDAS [Suspect]
     Route: 042
     Dates: start: 20060910, end: 20061001
  3. PIPERACILLIN SODIUM AND TAZOBACTAM SODIUM [Suspect]
     Route: 042
     Dates: start: 20060902, end: 20060915
  4. MIDAZOLAM HYDROCHLORIDE [Concomitant]
     Route: 042
  5. FUROSEMIDE [Concomitant]
     Route: 042
     Dates: end: 20060901
  6. HYDROCORTISONE HEMISUCCINATE [Concomitant]
     Route: 042
     Dates: start: 20060910, end: 20060912
  7. ESOMEPRAZOLE MAGNESIUM [Concomitant]
     Route: 065
  8. CLOPIDOGREL BISULFATE [Concomitant]
     Route: 048
     Dates: start: 20060913
  9. ENOXAPARIN SODIUM [Concomitant]
     Route: 065
  10. POTASSIUM CHLORIDE [Concomitant]
     Route: 065
  11. IODINE [Suspect]
     Indication: SCAN
     Route: 051
     Dates: start: 20060901
  12. DILTIAZEM HCL [Concomitant]
     Indication: HYPERTENSION
     Route: 048

REACTIONS (1)
  - RENAL TUBULAR DISORDER [None]
